FAERS Safety Report 25237621 (Version 1)
Quarter: 2025Q2

REPORT INFORMATION
  Report Type: Spontaneous
  Country: GR (occurrence: GR)
  Receive Date: 20250425
  Receipt Date: 20250425
  Transmission Date: 20250716
  Serious: Yes (Hospitalization, Other)
  Sender: GALDERMA
  Company Number: GR-PFIZER INC-PV202500043527

PATIENT

DRUGS (4)
  1. DOXYCYCLINE [Suspect]
     Active Substance: DOXYCYCLINE
     Indication: Leptospirosis
     Route: 065
  2. METRONIDAZOLE [Suspect]
     Active Substance: METRONIDAZOLE
     Indication: Leptospirosis
     Route: 065
  3. HYDROCORTISONE [Concomitant]
     Active Substance: HYDROCORTISONE
     Indication: Vasculitis
     Route: 065
  4. TOCILIZUMAB [Concomitant]
     Active Substance: TOCILIZUMAB
     Indication: Vasculitis
     Route: 065

REACTIONS (3)
  - Respiratory distress [Recovering/Resolving]
  - Haemoptysis [Recovering/Resolving]
  - Intentional product use issue [Recovered/Resolved]
